FAERS Safety Report 25179483 (Version 1)
Quarter: 2025Q2

REPORT INFORMATION
  Report Type: Spontaneous
  Country: US (occurrence: US)
  Receive Date: 20250409
  Receipt Date: 20250409
  Transmission Date: 20250717
  Serious: Yes (Hospitalization, Other)
  Sender: PFIZER
  Company Number: None

PATIENT
  Sex: Female
  Weight: 56 kg

DRUGS (5)
  1. CYTARABINE [Suspect]
     Active Substance: CYTARABINE
     Route: 065
  2. VINCRISTINE SULFATE [Suspect]
     Active Substance: VINCRISTINE SULFATE
     Route: 065
  3. ONCASPAR [Suspect]
     Active Substance: PEGASPARGASE
     Route: 065
  4. PREDNISOLONE [Suspect]
     Active Substance: PREDNISOLONE
     Route: 065
  5. DAUNORUBICIN [Suspect]
     Active Substance: DAUNORUBICIN
     Route: 065

REACTIONS (24)
  - Febrile neutropenia [Unknown]
  - Sepsis [Unknown]
  - Pseudomonas infection [Unknown]
  - Fungal infection [Unknown]
  - Pancytopenia [Unknown]
  - Immunosuppression [Unknown]
  - Tachycardia [Unknown]
  - Hypotension [Unknown]
  - Haemodynamic instability [Unknown]
  - Catheter site haematoma [Unknown]
  - Catheter site haemorrhage [Unknown]
  - Haematoma [Unknown]
  - Implant site haematoma [Unknown]
  - Catheter site necrosis [Unknown]
  - Implant site necrosis [Unknown]
  - Skin mass [Unknown]
  - Skin necrosis [Unknown]
  - Soft tissue necrosis [Unknown]
  - Ecthyma [Unknown]
  - Constipation [Unknown]
  - Discomfort [Unknown]
  - Nausea [Unknown]
  - Eating disorder [Unknown]
  - Menstrual disorder [Unknown]

NARRATIVE: CASE EVENT DATE: 20220630
